FAERS Safety Report 22845380 (Version 2)
Quarter: 2023Q4

REPORT INFORMATION
  Report Type: Spontaneous
  Country: HR (occurrence: HR)
  Receive Date: 20230821
  Receipt Date: 20231026
  Transmission Date: 20240110
  Serious: Yes (Other)
  Sender: FDA-Public Use
  Company Number: HR-SANDOZ-SDZ2023HR006068

PATIENT
  Sex: Male

DRUGS (4)
  1. PREGABALIN [Suspect]
     Active Substance: PREGABALIN
     Indication: Pain
     Dosage: 50 MG IN MORN,50 MG THROUGHOUT DAY,150 MG IN EVE.
     Route: 065
  2. PREGABALIN [Suspect]
     Active Substance: PREGABALIN
     Indication: Phantom limb syndrome
  3. LACTULOSE [Concomitant]
     Active Substance: LACTULOSE
     Indication: Constipation
     Dosage: UNK
     Route: 065
  4. CONTROLOC [Concomitant]
     Active Substance: PANTOPRAZOLE SODIUM
     Indication: Flatulence
     Dosage: 20 MILLIGRAM, BID (MORNING AND EVENING)
     Route: 065

REACTIONS (6)
  - Dependence [Unknown]
  - Drug abuse [Unknown]
  - Mood altered [Recovered/Resolved]
  - Increased appetite [Recovered/Resolved]
  - Constipation [Recovered/Resolved]
  - Abdominal distension [Unknown]
